FAERS Safety Report 23816152 (Version 7)
Quarter: 2025Q2

REPORT INFORMATION
  Report Type: Report from Study
  Country: CA (occurrence: CA)
  Receive Date: 20240503
  Receipt Date: 20250627
  Transmission Date: 20250717
  Serious: Yes (Death, Hospitalization, Other)
  Sender: SANDOZ
  Company Number: CA-SANDOZ-SDZ2024CA044570

PATIENT
  Sex: Male

DRUGS (2)
  1. PIRFENIDONE [Suspect]
     Active Substance: PIRFENIDONE
     Indication: Rheumatoid arthritis
     Dosage: 2.5 MG, QD
     Route: 048
     Dates: start: 20250609
  2. PIRFENIDONE [Suspect]
     Active Substance: PIRFENIDONE
     Indication: Idiopathic pulmonary fibrosis
     Dosage: UNK UNK, TID
     Route: 048
     Dates: start: 20210519

REACTIONS (6)
  - Respiratory failure [Fatal]
  - Interstitial lung disease [Fatal]
  - Idiopathic pulmonary fibrosis [Unknown]
  - Rheumatoid arthritis [Unknown]
  - Malaise [Unknown]
  - Viral infection [Unknown]
